FAERS Safety Report 13062162 (Version 1)
Quarter: 2016Q4

REPORT INFORMATION
  Report Type: Report from Study
  Country: None (occurrence: US)
  Receive Date: 20161226
  Receipt Date: 20161226
  Transmission Date: 20170207
  Serious: Yes (Hospitalization, Other)
  Sender: FDA-Public Use
  Company Number: US-ABBVIE-16K-163-1766974-00

PATIENT
  Age: 68 Year
  Sex: Female
  Weight: 96.25 kg

DRUGS (2)
  1. IMODIUM [Concomitant]
     Active Substance: LOPERAMIDE HYDROCHLORIDE
     Indication: PROPHYLAXIS AGAINST DIARRHOEA
  2. HUMIRA [Suspect]
     Active Substance: ADALIMUMAB
     Indication: CROHN^S DISEASE
     Route: 058
     Dates: start: 20150908, end: 201610

REACTIONS (10)
  - Gastrointestinal haemorrhage [Unknown]
  - Haematochezia [Recovered/Resolved]
  - Adverse drug reaction [Recovering/Resolving]
  - Gastric ulcer [Unknown]
  - Gastrointestinal wall thickening [Unknown]
  - Abdominal pain [Unknown]
  - Anal fistula [Unknown]
  - Asthenia [Unknown]
  - Diarrhoea [Recovered/Resolved]
  - Crohn^s disease [Unknown]

NARRATIVE: CASE EVENT DATE: 201512
